FAERS Safety Report 5480780-7 (Version None)
Quarter: 2007Q3

REPORT INFORMATION
  Report Type: 
  Country: None (occurrence: None)
  Receive Date: 20070917
  Receipt Date: 20070807
  Transmission Date: 20080115
  Serious: Yes (Hospitalization)
  Sender: FDA-Public Use
  Company Number: BDI-009902

PATIENT
  Sex: Male

DRUGS (2)
  1. MULTIHANCE [Suspect]
     Indication: LOSS OF CONSCIOUSNESS
     Dosage: IV
     Route: 042
     Dates: start: 20070718, end: 20070718
  2. MULTIHANCE [Suspect]
     Indication: NUCLEAR MAGNETIC RESONANCE IMAGING BRAIN
     Dosage: IV
     Route: 042
     Dates: start: 20070718, end: 20070718

REACTIONS (1)
  - HYPERSENSITIVITY [None]
